FAERS Safety Report 7473738-X (Version None)
Quarter: 2011Q2

REPORT INFORMATION
  Report Type: 
  Country: None (occurrence: None)
  Receive Date: 20110511
  Receipt Date: 20110502
  Transmission Date: 20111010
  Serious: Yes (Other)
  Sender: FDA-Public Use
  Company Number: US-ASTRAZENECA-2010SE07110

PATIENT
  Age: 51 Year
  Sex: Female

DRUGS (5)
  1. SEROQUEL [Suspect]
     Indication: DEPRESSION
     Route: 048
  2. DILANTIN [Suspect]
  3. PRISTIQ [Concomitant]
  4. EFFEXOR [Concomitant]
  5. KEPPRA [Concomitant]

REACTIONS (8)
  - INCORRECT DOSE ADMINISTERED [None]
  - HEPATIC FAILURE [None]
  - INSOMNIA [None]
  - RENAL FAILURE [None]
  - CONVULSION [None]
  - HIP FRACTURE [None]
  - HEAD INJURY [None]
  - MALAISE [None]
